FAERS Safety Report 6185909-3 (Version None)
Quarter: 2009Q2

REPORT INFORMATION
  Report Type: 
  Country: None (occurrence: None)
  Receive Date: 20090507
  Receipt Date: 20090427
  Transmission Date: 20091009
  Serious: Yes (Death, Hospitalization)
  Sender: FDA-Public Use
  Company Number: MOZO-1000123

PATIENT
  Age: 50 Year
  Sex: Female
  Weight: 89.2 kg

DRUGS (9)
  1. MOZOBIL [Suspect]
     Indication: HAEMATOPOIETIC STEM CELL MOBILISATION
     Dosage: 0.9 ML, QD, SUBCUTANEOUS
     Route: 058
     Dates: start: 20081103, end: 20081103
  2. G-CSF (GRANULOCYTE COLONY STIMULATING FACTOR) INJECTION [Concomitant]
  3. DIAZIDE (GLICLAZIDE) [Concomitant]
  4. PRILOSEC [Concomitant]
  5. VICODIN [Concomitant]
  6. FOLATE (FOLIC ACID) [Concomitant]
  7. VITAMIN E [Concomitant]
  8. MULTIVITAMIN [Concomitant]
  9. SENNA (SENNA ALEXANDRINA) [Concomitant]

REACTIONS (21)
  - BACK PAIN [None]
  - BLOOD CHLORIDE DECREASED [None]
  - BLOOD MAGNESIUM DECREASED [None]
  - BLOOD POTASSIUM DECREASED [None]
  - BLOOD UREA DECREASED [None]
  - BONE PAIN [None]
  - BREAKTHROUGH PAIN [None]
  - DEHYDRATION [None]
  - DISEASE PROGRESSION [None]
  - HAEMOGLOBIN DECREASED [None]
  - HALLUCINATION [None]
  - HEADACHE [None]
  - HYPONATRAEMIA [None]
  - MULTIPLE MYELOMA [None]
  - MUSCULOSKELETAL PAIN [None]
  - NAUSEA [None]
  - NECK PAIN [None]
  - PAIN IN EXTREMITY [None]
  - PLATELET COUNT DECREASED [None]
  - VOMITING [None]
  - WHITE BLOOD CELL COUNT INCREASED [None]
